FAERS Safety Report 17094983 (Version 1)
Quarter: 2019Q4

REPORT INFORMATION
  Report Type: Spontaneous
  Country: FR (occurrence: FR)
  Receive Date: 20191130
  Receipt Date: 20191130
  Transmission Date: 20200122
  Serious: Yes (Other)
  Sender: FDA-Public Use
  Company Number: FR-ACCORD-162809

PATIENT
  Age: 52 Year
  Sex: Female

DRUGS (6)
  1. VALDOXAN [Suspect]
     Active Substance: AGOMELATINE
     Indication: DEPRESSION
     Dosage: STRENGTH: 25 MG
     Route: 048
     Dates: end: 2016
  2. SERTRALINE [Suspect]
     Active Substance: SERTRALINE HYDROCHLORIDE
     Indication: DEPRESSION
     Route: 048
     Dates: start: 20170511
  3. DULOXETINE/DULOXETINE HYDROCHLORIDE [Suspect]
     Active Substance: DULOXETINE HYDROCHLORIDE
     Indication: DEPRESSION
     Route: 048
     Dates: end: 20170504
  4. KETAMINE RENAUDIN [Suspect]
     Active Substance: KETAMINE
     Indication: FIBROMYALGIA
     Route: 042
  5. KETAMINE RENAUDIN [Suspect]
     Active Substance: KETAMINE
     Indication: FIBROMYALGIA
     Dosage: NOT KNOWN
     Route: 058
     Dates: start: 201312, end: 201712
  6. SERTRALINE [Suspect]
     Active Substance: SERTRALINE HYDROCHLORIDE
     Indication: DEPRESSION
     Route: 048
     Dates: start: 20170202, end: 20170511

REACTIONS (3)
  - Asthenia [Not Recovered/Not Resolved]
  - Headache [Not Recovered/Not Resolved]
  - Memory impairment [Not Recovered/Not Resolved]

NARRATIVE: CASE EVENT DATE: 2019
